FAERS Safety Report 17363303 (Version 1)
Quarter: 2020Q1

REPORT INFORMATION
  Report Type: Spontaneous
  Country: CH (occurrence: CH)
  Receive Date: 20200203
  Receipt Date: 20200203
  Transmission Date: 20200409
  Serious: Yes (Hospitalization, Other)
  Sender: FDA-Public Use
  Company Number: CH-ALLERGAN-2003089US

PATIENT
  Sex: Female

DRUGS (15)
  1. ALDACTONE [Suspect]
     Active Substance: SPIRONOLACTONE
     Indication: PRODUCT USED FOR UNKNOWN INDICATION
     Dosage: 12.5 MG, QD, IN THE MORNING
     Route: 048
     Dates: end: 20200103
  2. PRED FORTE [Suspect]
     Active Substance: PREDNISOLONE ACETATE
     Indication: IRIDOCYCLITIS
     Dosage: 1 GTT, PER 2 HOURS
     Route: 001
     Dates: end: 20200110
  3. PREDNISOLON GALEPHARM [Suspect]
     Active Substance: PREDNISOLONE
     Indication: UVEITIS
     Dosage: 10 MG, QD, IN THE MORNING
     Dates: start: 20200108, end: 20200109
  4. METOPROLOL MEPHA [Concomitant]
     Dosage: 100 MG, BID
  5. PANTOPRAZOLE SODIUM. [Concomitant]
     Active Substance: PANTOPRAZOLE SODIUM
     Dosage: 40 MG, QD, IN THE MORNING
  6. PRED FORTE [Suspect]
     Active Substance: PREDNISOLONE ACETATE
     Dosage: 1 GTT, PER HOUR
     Route: 001
     Dates: start: 20191230
  7. ROSUVASTATIN MEPHA [Concomitant]
     Dosage: 20 MG, QD, IN THE MORNING
  8. QUETIAPINE. [Concomitant]
     Active Substance: QUETIAPINE
  9. PREDNISOLON GALEPHARM [Suspect]
     Active Substance: PREDNISOLONE
     Dosage: 20 MG, QD, IN THE MORNING
     Dates: start: 20200107, end: 20200107
  10. FLOXAL [Concomitant]
     Active Substance: OFLOXACIN
     Indication: IRIDOCYCLITIS
     Route: 065
  11. ENTRESTO [Concomitant]
     Active Substance: SACUBITRIL\VALSARTAN
     Dosage: 150 MG, BID
  12. PREDNISOLON GALEPHARM [Suspect]
     Active Substance: PREDNISOLONE
     Dosage: 30 MG, QD, IN THE MORNING
     Route: 048
     Dates: start: 20200103, end: 20200106
  13. ULTRACORTENOL [Suspect]
     Active Substance: PREDNISOLONE
     Indication: PRODUCT USED FOR UNKNOWN INDICATION
     Dosage: 1 DF, QD, EACH EVENING
     Route: 001
     Dates: start: 20191231
  14. LIXIANA [Suspect]
     Active Substance: EDOXABAN TOSYLATE
     Indication: ATRIAL FIBRILLATION
     Dosage: 6 MG, QD, IN THE MORNING
     Route: 048
  15. SOLU-MEDROL [Suspect]
     Active Substance: METHYLPREDNISOLONE SODIUM SUCCINATE
     Indication: UVEITIS
     Dosage: 250 MG
     Route: 042
     Dates: start: 20200101, end: 20200101

REACTIONS (5)
  - Off label use [Unknown]
  - Haematoma [Recovered/Resolved]
  - Hyperkalaemia [Recovered/Resolved]
  - Substance-induced psychotic disorder [Recovered/Resolved]
  - Delirium [Recovered/Resolved]

NARRATIVE: CASE EVENT DATE: 20200102
